FAERS Safety Report 25172772 (Version 1)
Quarter: 2025Q2

REPORT INFORMATION
  Report Type: Spontaneous
  Country: SI (occurrence: SI)
  Receive Date: 20250408
  Receipt Date: 20250408
  Transmission Date: 20250716
  Serious: Yes (Other)
  Sender: BAYER
  Company Number: SI-BAYER-2025A045896

PATIENT
  Age: 61 Year
  Sex: Female
  Weight: 75 kg

DRUGS (1)
  1. KERENDIA [Suspect]
     Active Substance: FINERENONE
     Indication: Chronic kidney disease

REACTIONS (13)
  - Respiratory tract infection [None]
  - Urinary tract infection [None]
  - Glomerular filtration rate decreased [None]
  - Urine albumin/creatinine ratio increased [None]
  - Blood creatinine increased [None]
  - Blood urea increased [None]
  - Protein urine present [None]
  - White blood cells urine positive [None]
  - White blood cell count increased [None]
  - Blood uric acid increased [None]
  - C-reactive protein increased [None]
  - Nitrite urine present [None]
  - Bacterial test positive [None]
